FAERS Safety Report 6928108 (Version 2)
Quarter: 2012Q4

REPORT INFORMATION
  Report Type: 
  Country: US (occurrence: US)
  Receive Date: 20090305
  Receipt Date: 20121102
  Transmission Date: 20130627
  Serious: No
  Sender: FDA-Public Use
  Company Number: US-ASTRAZENECA-2009UW05537

PATIENT
  Age: 66 Year
  Sex: Male

DRUGS (2)
  1. CRESTOR [Suspect]
     Route: 048
  2. NEXIUM [Suspect]
     Route: 048

REACTIONS (2)
  - Bronchitis [Unknown]
  - Sinusitis [Unknown]
